FAERS Safety Report 22636743 (Version 1)
Quarter: 2023Q2

REPORT INFORMATION
  Report Type: Spontaneous
  Country: US (occurrence: None)
  Receive Date: 20230621
  Receipt Date: 20230621
  Transmission Date: 20230721
  Serious: No
  Sender: FDA-Public Use
  Company Number: None

PATIENT
  Age: 30 Year
  Sex: Female
  Weight: 100 kg

DRUGS (1)
  1. LEMTRADA [Suspect]
     Active Substance: ALEMTUZUMAB
     Indication: Multiple sclerosis

REACTIONS (6)
  - Chest pain [None]
  - Dyspnoea [None]
  - Wheezing [None]
  - Infusion related reaction [None]
  - Cardio-respiratory arrest [None]
  - Heart rate increased [None]

NARRATIVE: CASE EVENT DATE: 20190808
